FAERS Safety Report 23411591 (Version 1)
Quarter: 2024Q1

REPORT INFORMATION
  Report Type: Spontaneous
  Country: US (occurrence: US)
  Receive Date: 20240117
  Receipt Date: 20240117
  Transmission Date: 20240410
  Serious: No
  Sender: FDA-Public Use
  Company Number: US-SA-SAC20240110001269

PATIENT
  Age: 27 Year
  Sex: Male
  Weight: 99.773 kg

DRUGS (1)
  1. DUPIXENT [Suspect]
     Active Substance: DUPILUMAB
     Indication: Dermatitis atopic
     Dosage: 300 MG, QOW
     Route: 058
     Dates: start: 2018

REACTIONS (5)
  - Urinary tract infection [Unknown]
  - Dry skin [Unknown]
  - Skin irritation [Unknown]
  - Stress [Unknown]
  - Eczema [Unknown]
